FAERS Safety Report 12171815 (Version 2)
Quarter: 2016Q1

REPORT INFORMATION
  Report Type: Spontaneous
  Country: FR (occurrence: FR)
  Receive Date: 20160311
  Receipt Date: 20160311
  Transmission Date: 20160526
  Serious: Yes (Hospitalization)
  Sender: FDA-Public Use
  Company Number: PHHY2016FR030030

PATIENT
  Age: 39 Year
  Sex: Male

DRUGS (6)
  1. LOXAPAC [Suspect]
     Active Substance: LOXAPINE SUCCINATE
     Indication: ABNORMAL BEHAVIOUR
     Dosage: 25 MG, TID
     Route: 048
     Dates: start: 2013
  2. LOXAPAC [Suspect]
     Active Substance: LOXAPINE SUCCINATE
     Dosage: 10 OT, UNK
     Route: 048
  3. DIAZEPAM. [Suspect]
     Active Substance: DIAZEPAM
     Indication: ABNORMAL BEHAVIOUR
     Dosage: 5 MG, TID
     Route: 048
     Dates: start: 2013
  4. RISPERIDONE. [Suspect]
     Active Substance: RISPERIDONE
     Indication: ABNORMAL BEHAVIOUR
     Dosage: 4 MG, QD
     Route: 048
     Dates: start: 2013
  5. REVOLADE [Suspect]
     Active Substance: ELTROMBOPAG
     Indication: IMMUNE THROMBOCYTOPENIC PURPURA
     Dosage: 75 MG, UNK
     Route: 048
     Dates: start: 201505
  6. MIRTAZAPINE. [Suspect]
     Active Substance: MIRTAZAPINE
     Indication: ABNORMAL BEHAVIOUR
     Dosage: 15 MG, QD
     Route: 048
     Dates: start: 2013

REACTIONS (1)
  - Ventricular extrasystoles [Recovered/Resolved]

NARRATIVE: CASE EVENT DATE: 20160106
